FAERS Safety Report 8380991-7 (Version None)
Quarter: 2012Q2

REPORT INFORMATION
  Report Type: 
  Country: None (occurrence: None)
  Receive Date: 20120523
  Receipt Date: 20120521
  Transmission Date: 20120825
  Serious: Yes (Hospitalization, Other)
  Sender: FDA-Public Use
  Company Number: TT-BAYER-2012-049862

PATIENT
  Age: 50 Year
  Sex: Female

DRUGS (1)
  1. ULTRAVIST 150 [Suspect]
     Indication: COMPUTERISED TOMOGRAM
     Dosage: 100 ML, ONCE
     Route: 042
     Dates: start: 20120501, end: 20120501

REACTIONS (7)
  - SPEECH DISORDER [None]
  - VISUAL IMPAIRMENT [None]
  - SKIN INDURATION [None]
  - SKIN WARM [None]
  - FLUSHING [None]
  - HEADACHE [None]
  - FEELING HOT [None]
